FAERS Safety Report 6371646-9 (Version None)
Quarter: 2009Q3

REPORT INFORMATION
  Report Type: 
  Country: None (occurrence: None)
  Receive Date: 20090923
  Receipt Date: 20080311
  Transmission Date: 20100115
  Serious: Yes (Other)
  Sender: FDA-Public Use
  Company Number: US-ASTRAZENECA-2008UW10401

PATIENT
  Age: 549 Month
  Sex: Female
  Weight: 115.2 kg

DRUGS (17)
  1. SEROQUEL [Suspect]
     Indication: BIPOLAR DISORDER
     Dosage: 100-500 MG
     Route: 048
     Dates: start: 20020701
  2. SEROQUEL [Suspect]
     Indication: DEPRESSION
     Dosage: 100-500 MG
     Route: 048
     Dates: start: 20020701
  3. SEROQUEL [Suspect]
     Dosage: 100-800 MG
     Route: 048
     Dates: start: 20030116
  4. SEROQUEL [Suspect]
     Dosage: 100-800 MG
     Route: 048
     Dates: start: 20030116
  5. GEODON [Concomitant]
     Dates: start: 20080211
  6. RISPERDAL [Concomitant]
     Dates: start: 20000101, end: 20020101
  7. RISPERDAL [Concomitant]
     Dates: start: 20080211
  8. CLONAZEPAM [Concomitant]
  9. VALIUM [Concomitant]
  10. XANAX [Concomitant]
  11. ZOLOFT [Concomitant]
  12. PAXIL [Concomitant]
  13. LIPITOR [Concomitant]
  14. ABILIFY [Concomitant]
  15. FUROSEMIDE [Concomitant]
  16. MIRTAZAPINE [Concomitant]
  17. ACETAMINOPHEN [Concomitant]

REACTIONS (5)
  - BLOOD CHOLESTEROL INCREASED [None]
  - DIABETES MELLITUS [None]
  - HYPERTENSION [None]
  - PANCREATITIS [None]
  - VISION BLURRED [None]
